FAERS Safety Report 12501052 (Version 2)
Quarter: 2016Q4

REPORT INFORMATION
  Report Type: Spontaneous
  Country: US (occurrence: US)
  Receive Date: 20160627
  Receipt Date: 20161205
  Transmission Date: 20170207
  Serious: Yes (Other)
  Sender: FDA-Public Use
  Company Number: US-SA-2016SA116135

PATIENT
  Age: 63 Year
  Sex: Male

DRUGS (4)
  1. PRALUENT [Suspect]
     Active Substance: ALIROCUMAB
     Dosage: STRENGTH 150 MG
     Route: 065
     Dates: start: 2016, end: 2016
  2. ALIROCUMAB PREFILLED PEN [Concomitant]
     Active Substance: ALIROCUMAB
     Dates: start: 201604
  3. ALIROCUMAB PREFILLED PEN [Concomitant]
     Active Substance: ALIROCUMAB
     Dosage: STRENGTH 150 MG
     Dates: start: 2016, end: 2016
  4. PRALUENT [Suspect]
     Active Substance: ALIROCUMAB
     Dosage: STRENGTH 75 MG
     Route: 065
     Dates: start: 201604

REACTIONS (8)
  - Muscle spasms [Unknown]
  - Influenza like illness [Unknown]
  - Haematochezia [Unknown]
  - Injection site erythema [Unknown]
  - Gastrointestinal haemorrhage [Unknown]
  - Rash [Unknown]
  - Urticaria [Unknown]
  - Injection site pain [Unknown]

NARRATIVE: CASE EVENT DATE: 2016
